FAERS Safety Report 15966400 (Version 2)
Quarter: 2019Q3

REPORT INFORMATION
  Report Type: Spontaneous
  Country: JP (occurrence: JP)
  Receive Date: 20190215
  Receipt Date: 20190813
  Transmission Date: 20191004
  Serious: Yes (Hospitalization)
  Sender: FDA-Public Use
  Company Number: JP-ROCHE-2266816

PATIENT
  Age: 46 Year
  Sex: Male

DRUGS (17)
  1. ETHYL ICOSAPENTATE [Concomitant]
     Active Substance: ICOSAPENT ETHYL
     Route: 065
  2. FLUNITRAZEPAM [Concomitant]
     Active Substance: FLUNITRAZEPAM
     Route: 065
  3. RINDERON [BETAMETHASONE] [Concomitant]
     Active Substance: BETAMETHASONE
     Route: 065
  4. SUPLATAST TOSILATE [Concomitant]
     Active Substance: SUPLATAST TOSILATE
     Route: 065
  5. ZETIA [Concomitant]
     Active Substance: EZETIMIBE
  6. XOFLUZA [Suspect]
     Active Substance: BALOXAVIR MARBOXIL
     Indication: INFLUENZA
     Route: 048
     Dates: start: 20190202, end: 20190202
  7. MONTELUKAST SODIUM. [Concomitant]
     Active Substance: MONTELUKAST SODIUM
     Route: 065
  8. GLYCYRON [DL-METHIONINE;GLYCINE;GLYCYRRHIZIC ACID, AMMONIUM SALT] [Concomitant]
     Route: 065
  9. DERMOSOL [BETAMETHASONE VALERATE] [Concomitant]
  10. JZOLOFT [Concomitant]
     Active Substance: SERTRALINE HYDROCHLORIDE
     Route: 065
  11. SYMBICORT [Concomitant]
     Active Substance: BUDESONIDE\FORMOTEROL FUMARATE DIHYDRATE
     Dosage: 4 DROP/DAY
     Route: 065
  12. ZOLPIDEM TARTRATE. [Concomitant]
     Active Substance: ZOLPIDEM TARTRATE
     Route: 065
  13. RUPAFIN [Concomitant]
     Active Substance: RUPATADINE FUMARATE
  14. XYZAL [Concomitant]
     Active Substance: LEVOCETIRIZINE DIHYDROCHLORIDE
  15. LORAZEPAM. [Concomitant]
     Active Substance: LORAZEPAM
     Route: 065
  16. CLARITHROMYCIN. [Concomitant]
     Active Substance: CLARITHROMYCIN
     Route: 065
  17. L-CARBOCYSTEINE [Concomitant]
     Active Substance: CARBOCYSTEINE
     Route: 065

REACTIONS (2)
  - Urinary retention [Recovering/Resolving]
  - Rhabdomyolysis [Unknown]

NARRATIVE: CASE EVENT DATE: 20190207
